FAERS Safety Report 13989692 (Version 1)
Quarter: 2017Q3

REPORT INFORMATION
  Report Type: Spontaneous
  Country: US (occurrence: US)
  Receive Date: 20170920
  Receipt Date: 20170920
  Transmission Date: 20171128
  Serious: Yes (Hospitalization, Other)
  Sender: FDA-Public Use
  Company Number: US-PFIZER INC-2017403012

PATIENT
  Age: 12 Year
  Sex: Female

DRUGS (2)
  1. IBUPROFEN. [Suspect]
     Active Substance: IBUPROFEN
     Dosage: 1500 MG, DAILY (600 MG IN THE MORNING AND 300 MG AT NOON, DINNER AND BEDTIME, RESPECTIVELY)
  2. IBUPROFEN. [Suspect]
     Active Substance: IBUPROFEN
     Indication: JUVENILE IDIOPATHIC ARTHRITIS
     Dosage: 300 MG, 4X/DAY

REACTIONS (2)
  - Lymphopenia [Recovered/Resolved]
  - Hepatotoxicity [Recovered/Resolved]
